FAERS Safety Report 4390132-9 (Version None)
Quarter: 2004Q3

REPORT INFORMATION
  Report Type: 
  Country: None (occurrence: None)
  Receive Date: 20040706
  Receipt Date: 20030130
  Transmission Date: 20050211
  Serious: Yes (Hospitalization)
  Sender: FDA-Public Use
  Company Number: US-MERCK-0302USA00109

PATIENT
  Age: 57 Year
  Sex: Female
  Weight: 100 kg

DRUGS (7)
  1. DIAZIDE [Concomitant]
     Route: 065
  2. METOPROLOL [Concomitant]
     Route: 065
  3. LOPRESSOR [Concomitant]
     Route: 065
  4. LOPRESSOR [Concomitant]
     Route: 065
     Dates: start: 20000401
  5. VIOXX [Suspect]
     Indication: LOCALISED OSTEOARTHRITIS
     Route: 048
     Dates: start: 20000101, end: 20010101
  6. VIOXX [Suspect]
     Route: 048
     Dates: end: 20010821
  7. ZOCOR [Concomitant]
     Route: 048
     Dates: start: 20000401

REACTIONS (22)
  - ANGINA PECTORIS [None]
  - AORTIC VALVE INCOMPETENCE [None]
  - ARRHYTHMIA SUPRAVENTRICULAR [None]
  - BACK PAIN [None]
  - BLOOD CHOLESTEROL INCREASED [None]
  - BRONCHITIS [None]
  - CARDIAC FAILURE CONGESTIVE [None]
  - CEREBROVASCULAR ACCIDENT [None]
  - CORONARY ARTERY DISEASE [None]
  - DYSPNOEA [None]
  - EMOTIONAL DISTRESS [None]
  - HEART RATE IRREGULAR [None]
  - INJURY [None]
  - MITRAL VALVE INCOMPETENCE [None]
  - MYOCARDIAL INFARCTION [None]
  - OVERDOSE [None]
  - PNEUMONIA [None]
  - PRURITUS [None]
  - RASH PAPULAR [None]
  - SEBACEOUS GLAND DISORDER [None]
  - THROMBOSIS [None]
  - UPPER RESPIRATORY TRACT INFECTION [None]
